FAERS Safety Report 12975015 (Version 2)
Quarter: 2016Q4

REPORT INFORMATION
  Report Type: Spontaneous
  Country: CH (occurrence: CH)
  Receive Date: 20161125
  Receipt Date: 20161201
  Transmission Date: 20170207
  Serious: Yes (Other)
  Sender: FDA-Public Use
  Company Number: CH-AMGEN-CHESP2016164292

PATIENT
  Age: 83 Year
  Sex: Male
  Weight: 73 kg

DRUGS (6)
  1. PROLIA [Suspect]
     Active Substance: DENOSUMAB
     Indication: OSTEOPOROSIS
     Dosage: 60 MG, UNK
     Route: 058
     Dates: start: 201302, end: 201510
  2. TILUR [Concomitant]
     Active Substance: ACEMETACIN
  3. IBANDRONATE [Concomitant]
     Active Substance: IBANDRONATE SODIUM
     Dosage: 150 UNK, QMO
  4. CALCIMAGON D3 [Concomitant]
     Active Substance: CALCIUM\CHOLECALCIFEROL
     Dosage: UNK
     Dates: start: 201307
  5. PANTOPRAZOLE [Concomitant]
     Active Substance: PANTOPRAZOLE SODIUM
     Indication: PAIN
     Dosage: 20 UNK, BID
  6. MIACALCIC [Concomitant]
     Active Substance: CALCITONIN SALMON
     Dosage: 200 UNK, QD (FOR 1 MONTH INTRODUCED)

REACTIONS (5)
  - Rheumatoid arthritis [Unknown]
  - Multiple fractures [Not Recovered/Not Resolved]
  - Cystitis [Unknown]
  - Thoracic vertebral fracture [Not Recovered/Not Resolved]
  - Bone density abnormal [Unknown]

NARRATIVE: CASE EVENT DATE: 20161025
